FAERS Safety Report 11301706 (Version 1)
Quarter: 2015Q3

REPORT INFORMATION
  Report Type: Spontaneous
  Country: US (occurrence: US)
  Receive Date: 20150722
  Receipt Date: 20150722
  Transmission Date: 20151125
  Serious: No
  Sender: FDA-Public Use
  Company Number: US-ELI_LILLY_AND_COMPANY-US200904000310

PATIENT
  Sex: Female

DRUGS (1)
  1. HUMATROPE [Suspect]
     Active Substance: SOMATROPIN
     Dosage: UNK, UNKNOWN
     Dates: start: 2007

REACTIONS (5)
  - Weight increased [Unknown]
  - Visual impairment [Unknown]
  - Diabetes mellitus [Unknown]
  - Dry eye [Unknown]
  - Hypoacusis [Unknown]

NARRATIVE: CASE EVENT DATE: 200808
